FAERS Safety Report 14939574 (Version 1)
Quarter: 2018Q2

REPORT INFORMATION
  Report Type: Spontaneous
  Country: US (occurrence: US)
  Receive Date: 20180525
  Receipt Date: 20180525
  Transmission Date: 20180711
  Serious: No
  Sender: FDA-Public Use
  Company Number: US-PFIZER INC-2018214352

PATIENT
  Age: 83 Year
  Sex: Male
  Weight: 115.65 kg

DRUGS (5)
  1. ERBITUX [Concomitant]
     Active Substance: CETUXIMAB
     Dosage: UNK
     Route: 065
  2. CARBOPLATIN. [Suspect]
     Active Substance: CARBOPLATIN
     Indication: METASTATIC SQUAMOUS CELL CARCINOMA
     Dosage: UNK
     Route: 065
     Dates: start: 201801
  3. ELIQUIS [Suspect]
     Active Substance: APIXABAN
     Indication: CEREBROVASCULAR ACCIDENT PROPHYLAXIS
     Dosage: 5 MG, BID
     Route: 048
     Dates: start: 20180403, end: 20180503
  4. PACLITAXEL. [Suspect]
     Active Substance: PACLITAXEL
     Indication: METASTATIC SQUAMOUS CELL CARCINOMA
     Dosage: UNK
     Route: 065
     Dates: start: 201801
  5. LYRICA [Concomitant]
     Active Substance: PREGABALIN
     Dosage: UNK
     Route: 065

REACTIONS (1)
  - Contusion [Unknown]
